FAERS Safety Report 21714256 (Version 3)
Quarter: 2025Q1

REPORT INFORMATION
  Report Type: Report from Study
  Country: FR (occurrence: FR)
  Receive Date: 20221212
  Receipt Date: 20250221
  Transmission Date: 20250409
  Serious: Yes (Other)
  Sender: TAKEDA
  Company Number: FR-TAKEDA-2022TUS095220

PATIENT
  Age: 41 Year
  Sex: Male

DRUGS (18)
  1. TEDUGLUTIDE [Suspect]
     Active Substance: TEDUGLUTIDE
     Indication: Short-bowel syndrome
     Dosage: 3.2 MILLIGRAM, QD
     Dates: start: 20171111, end: 202004
  2. TEDUGLUTIDE [Suspect]
     Active Substance: TEDUGLUTIDE
     Dosage: 3.2 MILLIGRAM, QD
     Dates: start: 20210422
  3. TEDUGLUTIDE [Suspect]
     Active Substance: TEDUGLUTIDE
  4. TEDUGLUTIDE [Suspect]
     Active Substance: TEDUGLUTIDE
  5. Spasfon [Concomitant]
     Indication: Prophylaxis
  6. VITAMIN B12 [Concomitant]
     Active Substance: CYANOCOBALAMIN
     Indication: Vitamin supplementation
     Dosage: 1.00 DOSAGE FORM, QD
     Dates: start: 20191107, end: 20191114
  7. .ALPHA.-TOCOPHEROL ACETATE, D- [Concomitant]
     Active Substance: .ALPHA.-TOCOPHEROL ACETATE, D-
     Indication: Vitamin E deficiency
     Dosage: UNK UNK, QD
  8. ESOMEPRAZOLE [Concomitant]
     Active Substance: ESOMEPRAZOLE
     Indication: Gastrooesophageal reflux prophylaxis
     Dosage: 40 MILLIGRAM, QD
  9. WARFARIN SODIUM [Concomitant]
     Active Substance: WARFARIN SODIUM
     Indication: Venous thrombosis
     Dosage: 1 MILLIGRAM, 1/WEEK
  10. Meteospasmyl [Concomitant]
     Indication: Abdominal pain
     Dosage: UNK UNK, TID
  11. PRIMPERAN [Concomitant]
     Active Substance: METOCLOPRAMIDE HYDROCHLORIDE
     Indication: Prophylaxis of nausea and vomiting
     Dosage: UNK UNK, TID
  12. Orocal vitamine d3 [Concomitant]
     Indication: Vitamin D deficiency
     Dosage: UNK UNK, TID
  13. Orocal vitamine d3 [Concomitant]
     Indication: Calcium deficiency
  14. MAGNE B6 [Concomitant]
     Active Substance: MAGNESIUM\PYRIDOXINE
     Indication: Magnesium deficiency
     Dosage: UNK UNK, TID
  15. ALFACALCIDOL [Concomitant]
     Active Substance: ALFACALCIDOL
     Indication: Vitamin D deficiency
     Dosage: 1 MICROGRAM, QD
  16. VITAMIN A PALMITATE [Concomitant]
     Active Substance: VITAMIN A PALMITATE
     Indication: Vitamin A deficiency
     Dosage: UNK UNK, 2/MONTH
  17. ERGOCALCIFEROL [Concomitant]
     Active Substance: ERGOCALCIFEROL
     Indication: Vitamin D deficiency
     Dosage: UNK UNK, 2/MONTH
  18. SODIUM CHLORIDE [Concomitant]
     Active Substance: SODIUM CHLORIDE
     Indication: Prophylaxis
     Dosage: 1 GRAM, QD

REACTIONS (1)
  - Pulmonary embolism [Recovered/Resolved]

NARRATIVE: CASE EVENT DATE: 20211207
